FAERS Safety Report 16639101 (Version 1)
Quarter: 2019Q3

REPORT INFORMATION
  Report Type: Spontaneous
  Country: GB (occurrence: GB)
  Receive Date: 20190726
  Receipt Date: 20190726
  Transmission Date: 20191004
  Serious: Yes (Hospitalization)
  Sender: FDA-Public Use
  Company Number: GB-TEVA-2019-GB-1083916

PATIENT
  Age: 89 Year
  Sex: Female

DRUGS (12)
  1. CAPSAICIN. [Concomitant]
     Active Substance: CAPSAICIN
     Dosage: APPLY 3-4 TIMES A DAY AS NECESSARY
     Route: 061
  2. HYPROMELLOSE [Concomitant]
     Active Substance: HYPROMELLOSES
     Route: 031
  3. CO-AMOXICLAV [Suspect]
     Active Substance: AMOXICILLIN\CLAVULANATE POTASSIUM
     Dosage: 500MG/125MG TABLETS
     Route: 048
     Dates: start: 20190512, end: 20190519
  4. CLARITHROMYCIN. [Suspect]
     Active Substance: CLARITHROMYCIN
     Route: 048
     Dates: start: 20190512, end: 20190519
  5. CALCIUM AND COLECALCIFEROL [Concomitant]
     Dosage: COLECALCIFEROL 200UNIT / CALCIUM CARBONATE 750MG TABLETS
     Route: 048
  6. LATANOPROST. [Concomitant]
     Active Substance: LATANOPROST
     Dosage: AT NIGHT. 50 MICROGRAMS/ML
     Route: 031
  7. HYDROMOL OINTMENT [Concomitant]
     Active Substance: PARAFFIN\WAX, EMULSIFYING
     Route: 061
  8. SERTRALINE [Concomitant]
     Active Substance: SERTRALINE HYDROCHLORIDE
     Dosage: MORNING
     Route: 048
  9. AMLODIPINE [Concomitant]
     Active Substance: AMLODIPINE BESYLATE
     Dosage: MORNING
     Route: 048
  10. CO-BENELDOPA [Concomitant]
     Active Substance: BENSERAZIDE HYDROCHLORIDE\LEVODOPA
     Dosage: 12.5MG/50MG
     Route: 048
  11. PARACETAMOL [Concomitant]
     Active Substance: ACETAMINOPHEN
     Route: 048
  12. NYSTATIN. [Concomitant]
     Active Substance: NYSTATIN
     Dosage: 100,000 UNITS/ML ORAL SUSPENSION SUGAR FREE
     Route: 048
     Dates: start: 20190514, end: 20190521

REACTIONS (1)
  - Rash pustular [Recovered/Resolved]

NARRATIVE: CASE EVENT DATE: 20190519
